FAERS Safety Report 7457927-6 (Version None)
Quarter: 2011Q2

REPORT INFORMATION
  Report Type: 
  Country: None (occurrence: None)
  Receive Date: 20110504
  Receipt Date: 20110428
  Transmission Date: 20111010
  Serious: Yes (Other)
  Sender: FDA-Public Use
  Company Number: MA-PFIZER INC-2011092391

PATIENT
  Age: 56 Year
  Sex: Female

DRUGS (3)
  1. TRIATEC [Concomitant]
     Indication: ACUTE CORONARY SYNDROME
  2. TAHOR [Suspect]
     Indication: ACUTE CORONARY SYNDROME
     Dosage: 80 MG, 1X/DAY
     Route: 048
  3. PLAVIX [Concomitant]
     Indication: ACUTE CORONARY SYNDROME

REACTIONS (1)
  - PANCREATIC CARCINOMA [None]
